FAERS Safety Report 14193865 (Version 1)
Quarter: 2017Q4

REPORT INFORMATION
  Report Type: Spontaneous
  Country: US (occurrence: US)
  Receive Date: 20171116
  Receipt Date: 20171116
  Transmission Date: 20180321
  Serious: No
  Sender: FDA-Public Use
  Company Number: US-ENDO PHARMACEUTICALS INC-2017-002554

PATIENT
  Sex: Female
  Weight: 68.03 kg

DRUGS (3)
  1. ACCOLATE [Suspect]
     Active Substance: ZAFIRLUKAST
     Indication: PROPHYLAXIS
     Dosage: 10 MG, UNKNOWN
     Route: 065
  2. ALBUTEROL                          /00139501/ [Concomitant]
     Active Substance: ALBUTEROL
     Indication: ASTHMA PROPHYLAXIS
  3. ACCOLATE [Suspect]
     Active Substance: ZAFIRLUKAST
     Dosage: 20 MG, UNKNOWN
     Route: 065

REACTIONS (7)
  - Bronchiectasis [Unknown]
  - Wrong technique in product usage process [Unknown]
  - Condition aggravated [Unknown]
  - Oropharyngeal pain [Unknown]
  - Rhinorrhoea [Unknown]
  - Asthenia [Unknown]
  - Infection [Unknown]
